FAERS Safety Report 19194030 (Version 14)
Quarter: 2023Q4

REPORT INFORMATION
  Report Type: Other
  Country: CA (occurrence: None)
  Receive Date: 20210429
  Receipt Date: 20231121
  Transmission Date: 20240110
  Serious: Yes (Other)
  Sender: FDA-Public Use
  Company Number: CA-ROCHE-2599954

PATIENT
  Age: 58 Year
  Sex: Female
  Weight: 99.88 kg

DRUGS (16)
  1. OCREVUS [Suspect]
     Active Substance: OCRELIZUMAB
     Indication: Relapsing-remitting multiple sclerosis
     Dosage: 300 MG AT DAY 0 AND 14, THEN 600 MG EVERY 6 MONTH
     Route: 042
     Dates: start: 20200509
  2. NITROGLYCERIN [Suspect]
     Active Substance: NITROGLYCERIN
     Indication: Product used for unknown indication
     Route: 065
  3. PREGABALIN [Suspect]
     Active Substance: PREGABALIN
     Indication: Product used for unknown indication
     Route: 065
  4. OMEPRAZOLE [Concomitant]
     Active Substance: OMEPRAZOLE
     Indication: Dyspepsia
     Dosage: 20 MG AT BED TIME
  5. AMLODIPINE [Concomitant]
     Active Substance: AMLODIPINE BESYLATE
     Dosage: 5 MG TWO TABLET
  6. ASPIRIN [Concomitant]
     Active Substance: ASPIRIN
  7. DULOXETINE [Concomitant]
     Active Substance: DULOXETINE
  8. CYCLOBENZAPRINE [Concomitant]
     Active Substance: CYCLOBENZAPRINE
     Dosage: 10 MG 2 TABLETS
  9. HYDROCHLOROTHIAZIDE [Concomitant]
     Active Substance: HYDROCHLOROTHIAZIDE
  10. LEVOTHYROXINE [Concomitant]
     Active Substance: LEVOTHYROXINE
  11. PRAZOSIN [Concomitant]
     Active Substance: PRAZOSIN
     Dosage: 2 TAB
  12. ROPINIROLE [Concomitant]
     Active Substance: ROPINIROLE
     Indication: Restless legs syndrome
  13. ROSUVASTATIN [Concomitant]
     Active Substance: ROSUVASTATIN
  14. IBUPROFEN [Concomitant]
     Active Substance: IBUPROFEN
  15. NITROGLYCERIN [Concomitant]
     Active Substance: NITROGLYCERIN
  16. HYDROMORPHONE [Concomitant]
     Active Substance: HYDROMORPHONE

REACTIONS (38)
  - Adrenal neoplasm [Not Recovered/Not Resolved]
  - Renal neoplasm [Not Recovered/Not Resolved]
  - Diverticulitis [Recovering/Resolving]
  - Angina pectoris [Recovered/Resolved]
  - Haematochezia [Not Recovered/Not Resolved]
  - Cataract [Recovered/Resolved]
  - Occipital neuralgia [Recovered/Resolved]
  - Insomnia [Not Recovered/Not Resolved]
  - Infusion related reaction [Recovered/Resolved]
  - Fatigue [Not Recovered/Not Resolved]
  - Throat tightness [Recovered/Resolved]
  - Memory impairment [Not Recovered/Not Resolved]
  - Constipation [Not Recovered/Not Resolved]
  - Blood pressure decreased [Unknown]
  - Headache [Recovering/Resolving]
  - Blood pressure fluctuation [Not Recovered/Not Resolved]
  - Feeling abnormal [Unknown]
  - Drug ineffective [Unknown]
  - Heart rate irregular [Unknown]
  - Malaise [Recovered/Resolved]
  - Tremor [Recovered/Resolved]
  - Chest pain [Unknown]
  - Palpitations [Unknown]
  - Immunodeficiency [Not Recovered/Not Resolved]
  - Dizziness [Recovering/Resolving]
  - Apathy [Not Recovered/Not Resolved]
  - Pain [Not Recovered/Not Resolved]
  - Muscle spasms [Recovered/Resolved]
  - Hallucination [Not Recovered/Not Resolved]
  - Amnesia [Not Recovered/Not Resolved]
  - Cerebral disorder [Not Recovered/Not Resolved]
  - COVID-19 [Recovered/Resolved]
  - Arthritis [Unknown]
  - Fall [Unknown]
  - Screaming [Unknown]
  - Anxiety [Unknown]
  - Depression [Unknown]
  - Hypoacusis [Not Recovered/Not Resolved]

NARRATIVE: CASE EVENT DATE: 20200509
